FAERS Safety Report 22109481 (Version 1)
Quarter: 2023Q1

REPORT INFORMATION
  Report Type: Report from Study
  Country: CA (occurrence: CA)
  Receive Date: 20230317
  Receipt Date: 20230317
  Transmission Date: 20230418
  Serious: Yes (Hospitalization, Other)
  Sender: FDA-Public Use
  Company Number: CA-TAKEDA-2022TUS068637

PATIENT
  Age: 82 Year
  Sex: Male

DRUGS (15)
  1. VEDOLIZUMAB [Suspect]
     Active Substance: VEDOLIZUMAB
     Indication: Crohn^s disease
     Dosage: 300 MILLIGRAM
     Route: 042
     Dates: start: 20220407
  2. VEDOLIZUMAB [Suspect]
     Active Substance: VEDOLIZUMAB
     Dosage: 300 MILLIGRAM
     Route: 042
  3. VEDOLIZUMAB [Suspect]
     Active Substance: VEDOLIZUMAB
     Dosage: 300 MILLIGRAM
     Route: 042
  4. PREDNISONE [Concomitant]
     Active Substance: PREDNISONE
     Dosage: 15 MILLIGRAM, QD
  5. LEVOTHYROXINE [Concomitant]
     Active Substance: LEVOTHYROXINE
     Indication: Thyroid disorder
     Dosage: 50 MILLIGRAM
  6. VITAMIN D [Concomitant]
     Active Substance: VITAMIN D NOS
     Dosage: UNK
  7. IRON [Concomitant]
     Active Substance: IRON
     Dosage: UNK
  8. TAFINLAR [Concomitant]
     Active Substance: DABRAFENIB MESYLATE
     Indication: Neoplasm malignant
     Dosage: UNK
     Route: 048
  9. PANTOPRAZOLE SODIUM [Concomitant]
     Active Substance: PANTOPRAZOLE SODIUM
     Indication: Gastrooesophageal reflux disease
     Dosage: UNK
  10. DABRAFENIB MESYLATE [Concomitant]
     Active Substance: DABRAFENIB MESYLATE
     Dosage: UNK
  11. TRAMETINIB [Concomitant]
     Active Substance: TRAMETINIB
     Dosage: 2 MILLIGRAM
     Route: 048
  12. VITALIX [Concomitant]
     Indication: Eye disorder
     Dosage: UNK
     Route: 050
  13. LUMIGAN [Concomitant]
     Active Substance: BIMATOPROST
     Dosage: UNK
  14. MEKINIST [Concomitant]
     Active Substance: TRAMETINIB DIMETHYL SULFOXIDE
     Indication: Neoplasm malignant
     Dosage: UNK
  15. MINERALS\VITAMINS [Concomitant]
     Active Substance: MINERALS\VITAMINS
     Dosage: UNK

REACTIONS (5)
  - Kidney infection [Recovering/Resolving]
  - Crohn^s disease [Recovering/Resolving]
  - Red blood cell count decreased [Recovering/Resolving]
  - Fall [Recovering/Resolving]
  - Dry skin [Recovering/Resolving]
